FAERS Safety Report 25476239 (Version 1)
Quarter: 2025Q2

REPORT INFORMATION
  Report Type: Spontaneous
  Country: ES (occurrence: ES)
  Receive Date: 20250625
  Receipt Date: 20250625
  Transmission Date: 20250717
  Serious: Yes (Life-Threatening, Hospitalization, Other)
  Sender: CHEPLAPHARM
  Company Number: None

PATIENT
  Age: 43 Year
  Sex: Male

DRUGS (6)
  1. QUETIAPINE [Interacting]
     Active Substance: QUETIAPINE
     Indication: Suicide attempt
     Route: 048
     Dates: start: 20250425, end: 20250425
  2. DIAZEPAM [Interacting]
     Active Substance: DIAZEPAM
     Indication: Suicide attempt
     Route: 048
     Dates: start: 20250425, end: 20250425
  3. BUPROPION HYDROCHLORIDE [Interacting]
     Active Substance: BUPROPION HYDROCHLORIDE
     Indication: Suicide attempt
     Route: 048
     Dates: start: 20250425, end: 20250425
  4. LISINOPRIL [Concomitant]
     Active Substance: LISINOPRIL
  5. NORTRIPTYLINE [Concomitant]
     Active Substance: NORTRIPTYLINE
  6. BILASTINE [Concomitant]
     Active Substance: BILASTINE

REACTIONS (12)
  - Depressed level of consciousness [Recovered/Resolved]
  - Tachycardia [Recovered/Resolved]
  - Generalised tonic-clonic seizure [Recovered/Resolved]
  - Long QT syndrome [Recovered/Resolved]
  - Hypotension [Unknown]
  - Miosis [Unknown]
  - Disorientation [Unknown]
  - Psychomotor retardation [Unknown]
  - Hallucination, visual [Unknown]
  - Encephalopathy [Recovering/Resolving]
  - Somnolence [Not Recovered/Not Resolved]
  - Suicide attempt [Unknown]

NARRATIVE: CASE EVENT DATE: 20250425
